FAERS Safety Report 10452118 (Version 1)
Quarter: 2014Q3

REPORT INFORMATION
  Report Type: Spontaneous
  Country: US (occurrence: None)
  Receive Date: 20140912
  Receipt Date: 20140912
  Transmission Date: 20150326
  Serious: No
  Sender: FDA-Public Use
  Company Number: None

PATIENT
  Sex: Female

DRUGS (3)
  1. MARCAINE [Suspect]
     Active Substance: BUPIVACAINE HYDROCHLORIDE
     Indication: SPINAL ANAESTHESIA
     Dosage: INJECTION, ONE TIME, SPINAL
     Dates: start: 20140909, end: 20140909
  2. AMPUL BUPIVACINE HCL [Concomitant]
  3. DEXTROSE. [Concomitant]
     Active Substance: DEXTROSE

REACTIONS (4)
  - Drug ineffective [None]
  - Caesarean section [None]
  - Anaesthetic complication [None]
  - Exposure during pregnancy [None]

NARRATIVE: CASE EVENT DATE: 20140909
